FAERS Safety Report 6313758-1 (Version None)
Quarter: 2009Q3

REPORT INFORMATION
  Report Type: 
  Country: None (occurrence: None)
  Receive Date: 20090818
  Receipt Date: 20080924
  Transmission Date: 20100115
  Serious: No
  Sender: FDA-Public Use
  Company Number: US-BRISTOL-MYERS SQUIBB COMPANY-14353957

PATIENT

DRUGS (6)
  1. ATAZANAVIR [Suspect]
  2. CYCLOPHOSPHAMIDE [Suspect]
  3. DOXORUBICIN HCL [Suspect]
  4. VINCRISTINE SULFATE [Suspect]
  5. RITUXIMAB [Suspect]
  6. PREDNISONE [Suspect]

REACTIONS (1)
  - BLOOD BILIRUBIN INCREASED [None]
